FAERS Safety Report 17740022 (Version 1)
Quarter: 2020Q2

REPORT INFORMATION
  Report Type: Spontaneous
  Country: US (occurrence: US)
  Receive Date: 20200503
  Receipt Date: 20200503
  Transmission Date: 20200714
  Serious: Yes (Disabling, Other)
  Sender: FDA-Public Use
  Company Number: None

PATIENT
  Age: 59 Year
  Sex: Female
  Weight: 60.75 kg

DRUGS (1)
  1. TESSALON PERLES (GENERIC) [Suspect]
     Active Substance: BENZONATATE
     Indication: COVID-19
     Dates: start: 20200401, end: 20200402

REACTIONS (2)
  - Pneumonia [None]
  - Cough [None]

NARRATIVE: CASE EVENT DATE: 20200401
